FAERS Safety Report 6177148-7 (Version None)
Quarter: 2009Q2

REPORT INFORMATION
  Report Type: 
  Country: None (occurrence: None)
  Receive Date: 20090504
  Receipt Date: 20090427
  Transmission Date: 20091009
  Serious: Yes (Hospitalization)
  Sender: FDA-Public Use
  Company Number: ES-PFIZER INC-2008023240

PATIENT

DRUGS (11)
  1. VORICONAZOLE [Suspect]
     Indication: ANTIFUNGAL PROPHYLAXIS
     Dosage: UNK
     Route: 042
     Dates: start: 20080111, end: 20080113
  2. VORICONAZOLE [Suspect]
     Route: 048
     Dates: start: 20080113, end: 20080217
  3. FLUCONAZOLE [Suspect]
     Route: 048
  4. CELLCEPT [Concomitant]
     Route: 048
  5. ACFOL [Concomitant]
     Route: 048
  6. OMEPRAZOLE [Concomitant]
     Route: 048
  7. ALPRAZOLAM [Concomitant]
     Route: 048
  8. PENTAMIDINE ISETHIONATE [Concomitant]
     Route: 048
  9. SALINA [Concomitant]
     Route: 042
  10. POTASSIUM CHLORIDE [Concomitant]
     Route: 042
  11. CHLORPROMAZINE [Concomitant]
     Route: 042

REACTIONS (5)
  - CYTOMEGALOVIRUS INFECTION [None]
  - ESCHERICHIA INFECTION [None]
  - GRAFT VERSUS HOST DISEASE [None]
  - NAUSEA [None]
  - VOMITING [None]
